FAERS Safety Report 4778908-7 (Version None)
Quarter: 2005Q3

REPORT INFORMATION
  Report Type: 
  Country: None (occurrence: None)
  Receive Date: 20050922
  Receipt Date: 20050913
  Transmission Date: 20060218
  Serious: Yes (Death, Hospitalization)
  Sender: FDA-Public Use
  Company Number: 163-20785-05010235

PATIENT
  Age: 65 Year
  Sex: Male

DRUGS (9)
  1. THALOMID [Suspect]
     Indication: MALIGNANT NEOPLASM OF RENAL PELVIS
     Dosage: 50 MG DAILY ORAL
     Route: 048
     Dates: start: 20041112, end: 20040101
  2. PROCRIT [Concomitant]
  3. MORPHINE [Concomitant]
  4. PERCOCET [Concomitant]
  5. OXYCONTIN (AMLODIPINE BESILATE) [Concomitant]
  6. TENORMIN [Concomitant]
  7. LANTUS [Concomitant]
  8. AGGRENOX [Concomitant]
  9. LABETALOL [Concomitant]

REACTIONS (7)
  - BLOOD GLUCOSE INCREASED [None]
  - BLOOD POTASSIUM INCREASED [None]
  - DISEASE PROGRESSION [None]
  - HAEMOGLOBIN DECREASED [None]
  - MALIGNANT PLEURAL EFFUSION [None]
  - METABOLIC ACIDOSIS [None]
  - RESPIRATORY FAILURE [None]
